FAERS Safety Report 9015672 (Version 1)
Quarter: 2013Q1

REPORT INFORMATION
  Report Type: Spontaneous
  Country: MX (occurrence: None)
  Receive Date: 20130103
  Receipt Date: 20130103
  Transmission Date: 20140127
  Serious: Yes (Hospitalization)
  Sender: FDA-Public Use
  Company Number: 2012-004522

PATIENT
  Age: 75 Year
  Sex: Female
  Weight: 50 kg

DRUGS (3)
  1. ACTONEL (RISEDRONATE SODIUM) TABLET, 35MG [Suspect]
     Indication: OSTEOPOROSIS
     Dosage: 1/WEEK
     Route: 048
     Dates: start: 2010, end: 201201
  2. OS-CAL 500+ D [Concomitant]
  3. GLUCOSAMINE CHONDROITIN /01625901/ (CHONDROITIN SULFATE, GLUCOSAMINE) [Concomitant]

REACTIONS (5)
  - Angina pectoris [None]
  - Eye disorder [None]
  - Malaise [None]
  - Treatment noncompliance [None]
  - Economic problem [None]
